FAERS Safety Report 8272397-6 (Version None)
Quarter: 2012Q2

REPORT INFORMATION
  Report Type: 
  Country: None (occurrence: None)
  Receive Date: 20120410
  Receipt Date: 20120327
  Transmission Date: 20120825
  Serious: Yes (Other)
  Sender: FDA-Public Use
  Company Number: CHPA2012US003993

PATIENT
  Sex: Male

DRUGS (1)
  1. MICONAZOLE NITRATE [Suspect]
     Indication: TINEA PEDIS
     Dosage: UNK, UNK
     Route: 061
     Dates: end: 20120218

REACTIONS (4)
  - FURUNCLE [None]
  - ERYTHEMA [None]
  - PAIN [None]
  - UNDERDOSE [None]
